FAERS Safety Report 8540426-8 (Version None)
Quarter: 2012Q3

REPORT INFORMATION
  Report Type: 
  Country: None (occurrence: None)
  Receive Date: 20120726
  Receipt Date: 20120131
  Transmission Date: 20120928
  Serious: No
  Sender: FDA-Public Use
  Company Number: US-ASTRAZENECA-2011SE36221

PATIENT
  Age: 29 Year
  Sex: Male
  Weight: 72.1 kg

DRUGS (4)
  1. SEROQUEL XR [Suspect]
     Indication: BIPOLAR DISORDER
     Route: 048
     Dates: start: 20090201, end: 20090301
  2. SEROQUEL XR [Suspect]
     Route: 048
  3. SEROQUEL XR [Suspect]
     Route: 048
  4. SEROQUEL XR [Suspect]
     Dosage: INCREASED TO 300 MG
     Route: 048
     Dates: start: 20090301, end: 20090501

REACTIONS (3)
  - WEIGHT INCREASED [None]
  - HYPERSOMNIA [None]
  - DRUG INEFFECTIVE [None]
